FAERS Safety Report 5372316-6 (Version None)
Quarter: 2007Q2

REPORT INFORMATION
  Report Type: 
  Country: None (occurrence: None)
  Receive Date: 20070627
  Receipt Date: 20070410
  Transmission Date: 20071010
  Serious: No
  Sender: FDA-Public Use
  Company Number: US-BRISTOL-MYERS SQUIBB COMPANY-13744743

PATIENT
  Age: 51 Year
  Sex: Female

DRUGS (2)
  1. BARACLUDE [Suspect]
  2. TOPROL-XL [Concomitant]

REACTIONS (3)
  - DIZZINESS [None]
  - PALPITATIONS [None]
  - RASH [None]
